FAERS Safety Report 9868288 (Version 2)
Quarter: 2014Q1

REPORT INFORMATION
  Report Type: Spontaneous
  Country: FI (occurrence: FI)
  Receive Date: 20140204
  Receipt Date: 20140218
  Transmission Date: 20141002
  Serious: Yes (Other)
  Sender: FDA-Public Use
  Company Number: FI-AMGEN-FINSP2014007317

PATIENT
  Age: 60 Year
  Sex: Female

DRUGS (1)
  1. ENBREL [Suspect]
     Indication: RHEUMATOID ARTHRITIS
     Dosage: UNK
     Route: 065
     Dates: start: 2006

REACTIONS (7)
  - Bursa disorder [Not Recovered/Not Resolved]
  - Scar [Not Recovered/Not Resolved]
  - Nodule [Not Recovered/Not Resolved]
  - Erythema elevatum diutinum [Not Recovered/Not Resolved]
  - Foreign body reaction [Not Recovered/Not Resolved]
  - Vasculitis [Not Recovered/Not Resolved]
  - Sarcoidosis [Not Recovered/Not Resolved]
